FAERS Safety Report 9484781 (Version 8)
Quarter: 2014Q3

REPORT INFORMATION
  Report Type: Spontaneous
  Country: US (occurrence: US)
  Receive Date: 20130828
  Receipt Date: 20140917
  Transmission Date: 20150326
  Serious: Yes (Hospitalization)
  Sender: FDA-Public Use
  Company Number: US-GLAXOSMITHKLINE-A1039383A

PATIENT
  Age: 73 Year
  Sex: Female

DRUGS (8)
  1. VENTOLIN HFA [Suspect]
     Active Substance: ALBUTEROL SULFATE
     Indication: CHRONIC OBSTRUCTIVE PULMONARY DISEASE
     Dosage: 2PUFF AS REQUIRED
     Route: 055
     Dates: start: 20130911
  2. NISOLDIPINE. [Concomitant]
     Active Substance: NISOLDIPINE
  3. OXYGEN. [Concomitant]
     Active Substance: OXYGEN
  4. PROAIR HFA [Suspect]
     Active Substance: ALBUTEROL SULFATE
     Indication: CHRONIC OBSTRUCTIVE PULMONARY DISEASE
     Dosage: 2PUFF AS REQUIRED
     Route: 055
  5. POTASSIUM [Concomitant]
     Active Substance: POTASSIUM
  6. XANAX [Concomitant]
     Active Substance: ALPRAZOLAM
  7. BLOOD PRESSURE MEDICATION [Concomitant]
     Active Substance: UNSPECIFIED INGREDIENT
  8. AMLODIPINE [Concomitant]
     Active Substance: AMLODIPINE BESYLATE

REACTIONS (10)
  - Colon cancer stage III [Unknown]
  - Inhalation therapy [Recovering/Resolving]
  - Investigation [Unknown]
  - Renal disorder [Recovering/Resolving]
  - Renal surgery [Recovering/Resolving]
  - Hypersensitivity [Unknown]
  - Colon cancer [Unknown]
  - Asthenia [Recovering/Resolving]
  - Drug ineffective [Recovering/Resolving]
  - Neoplasm malignant [Recovered/Resolved]

NARRATIVE: CASE EVENT DATE: 2010
